FAERS Safety Report 21404052 (Version 1)
Quarter: 2022Q4

REPORT INFORMATION
  Report Type: Spontaneous
  Country: CH (occurrence: CH)
  Receive Date: 20221003
  Receipt Date: 20221003
  Transmission Date: 20230113
  Serious: Yes (Other)
  Sender: FDA-Public Use
  Company Number: CH-009507513-2209CHE001172

PATIENT
  Sex: Male
  Weight: 76 kg

DRUGS (1)
  1. KEYTRUDA [Suspect]
     Active Substance: PEMBROLIZUMAB
     Indication: Head and neck cancer
     Dosage: 200 MG IV, EVERY 3 WEEKS
     Route: 042
     Dates: start: 20220523, end: 20220728

REACTIONS (1)
  - Immune-mediated neuropathy [Recovering/Resolving]

NARRATIVE: CASE EVENT DATE: 20220730
